FAERS Safety Report 9791561 (Version 3)
Quarter: 2014Q1

REPORT INFORMATION
  Report Type: Spontaneous
  Country: IT (occurrence: IT)
  Receive Date: 20140101
  Receipt Date: 20140225
  Transmission Date: 20141002
  Serious: Yes (Hospitalization)
  Sender: FDA-Public Use
  Company Number: PHHY2013IT151352

PATIENT
  Sex: Female

DRUGS (3)
  1. ALPRAZOLAM [Suspect]
     Indication: INTENTIONAL SELF-INJURY
     Dosage: 25 DF, ONCE/SINGLE
     Route: 048
     Dates: start: 20131106, end: 20131106
  2. ALPRAZOLAM [Suspect]
     Dosage: 0.5 MG,
     Route: 048
  3. CITALOPRAM [Concomitant]
     Dosage: 20 MG,
     Route: 048

REACTIONS (2)
  - Drug abuse [Not Recovered/Not Resolved]
  - Sopor [Not Recovered/Not Resolved]
